FAERS Safety Report 9205755 (Version 1)
Quarter: 2013Q2

REPORT INFORMATION
  Report Type: Spontaneous
  Country: SR (occurrence: None)
  Receive Date: 20130401
  Receipt Date: 20130401
  Transmission Date: 20140414
  Serious: Yes (Death)
  Sender: FDA-Public Use
  Company Number: 1646957

PATIENT
  Sex: 0

DRUGS (1)
  1. NORADRENALINE TARTRATE [Suspect]
     Indication: ACUTE HEPATIC FAILURE
     Dates: start: 20120929, end: 20120930

REACTIONS (1)
  - Adverse event [None]
